FAERS Safety Report 13002689 (Version 1)
Quarter: 2016Q4

REPORT INFORMATION
  Report Type: Spontaneous
  Country: FR (occurrence: FR)
  Receive Date: 20161206
  Receipt Date: 20161206
  Transmission Date: 20170207
  Serious: Yes (Hospitalization)
  Sender: FDA-Public Use
  Company Number: FR-JNJFOC-20161201557

PATIENT
  Age: 90 Year
  Sex: Male

DRUGS (12)
  1. AMLODIPINE [Suspect]
     Active Substance: AMLODIPINE BESYLATE
     Indication: HYPERTENSION
     Dosage: IN THE MORNING
     Route: 048
     Dates: end: 20160905
  2. RISPERDAL [Suspect]
     Active Substance: RISPERIDONE
     Indication: SCHIZOPHRENIA
     Dosage: 1 TABLET IN THE EVENING
     Route: 048
     Dates: end: 20160912
  3. FUROSEMIDE. [Suspect]
     Active Substance: FUROSEMIDE
     Indication: HYPERTENSION
     Dosage: IN THE MORNING
     Route: 048
     Dates: end: 20160905
  4. RISPERDAL [Suspect]
     Active Substance: RISPERIDONE
     Indication: SCHIZOPHRENIA
     Dosage: IN THE MORNING AND IN THE EVENING
     Route: 048
  5. BISOPROLOL [Suspect]
     Active Substance: BISOPROLOL
     Indication: HYPERTENSION
     Dosage: IN THE MORNING
     Route: 048
     Dates: start: 2011
  6. MACROGOL [Concomitant]
     Active Substance: POLYETHYLENE GLYCOLS
     Dosage: 1-2 SACHETS PER DAY
     Route: 048
  7. XATRAL [Suspect]
     Active Substance: ALFUZOSIN
     Indication: BENIGN PROSTATIC HYPERPLASIA
     Route: 048
  8. ZOLOFT [Suspect]
     Active Substance: SERTRALINE HYDROCHLORIDE
     Indication: DEPRESSION
     Dosage: IN THE MORNING
     Route: 048
  9. CLOPIDOGREL [Concomitant]
     Active Substance: CLOPIDOGREL BISULFATE
     Dosage: AT MIDDAY
     Route: 048
  10. ZOPICLONE [Suspect]
     Active Substance: ZOPICLONE
     Indication: INSOMNIA
     Dosage: AT BEDTIME
     Route: 048
  11. URBANYL [Suspect]
     Active Substance: CLOBAZAM
     Indication: ANXIETY
     Route: 048
     Dates: start: 201406
  12. ENALAPRIL [Suspect]
     Active Substance: ENALAPRIL
     Indication: HYPERTENSION
     Dosage: IN THE MORNING
     Route: 048
     Dates: end: 20160905

REACTIONS (11)
  - Fall [Recovered/Resolved]
  - Malaise [Recovered/Resolved]
  - General physical health deterioration [Unknown]
  - Somnolence [Unknown]
  - Asthenia [Recovered/Resolved]
  - Leukoencephalopathy [Unknown]
  - Disturbance in attention [Not Recovered/Not Resolved]
  - Extrapyramidal disorder [Unknown]
  - Hypotension [Unknown]
  - Inflammation [Recovered/Resolved]
  - Dysstasia [Recovered/Resolved]

NARRATIVE: CASE EVENT DATE: 20160903
